FAERS Safety Report 12246897 (Version 2)
Quarter: 2016Q2

REPORT INFORMATION
  Report Type: Spontaneous
  Country: US (occurrence: US)
  Receive Date: 20160407
  Receipt Date: 20160408
  Transmission Date: 20160815
  Serious: No
  Sender: FDA-Public Use
  Company Number: US-TEVA-647100USA

PATIENT
  Age: 8 Month
  Sex: Female
  Weight: 8.2 kg

DRUGS (1)
  1. PROAIR HFA [Suspect]
     Active Substance: ALBUTEROL SULFATE
     Indication: WHEEZING
     Dosage: 1 PUFF EVERY 4 TO 6 HRS
     Route: 065
     Dates: start: 20160324

REACTIONS (6)
  - Adverse event [Unknown]
  - Drug administered to patient of inappropriate age [Unknown]
  - Cough [Unknown]
  - Ocular hyperaemia [Unknown]
  - Eye swelling [Unknown]
  - Drooling [Unknown]

NARRATIVE: CASE EVENT DATE: 20160324
